FAERS Safety Report 12270887 (Version 6)
Quarter: 2016Q3

REPORT INFORMATION
  Report Type: Report from Study
  Country: FR (occurrence: FR)
  Receive Date: 20160415
  Receipt Date: 20160920
  Transmission Date: 20161109
  Serious: Yes (Hospitalization)
  Sender: FDA-Public Use
  Company Number: FR-ROCHE-1738942

PATIENT
  Age: 64 Year
  Sex: Male
  Weight: 78 kg

DRUGS (46)
  1. FLUDARABINE [Suspect]
     Active Substance: FLUDARABINE PHOSPHATE
     Dosage: CYCLE 1 DAY 3
     Route: 048
     Dates: start: 20140419, end: 20140419
  2. FLUDARABINE [Suspect]
     Active Substance: FLUDARABINE PHOSPHATE
     Dosage: CYCLE 2 DAY 1
     Route: 048
     Dates: start: 20140515, end: 20140515
  3. CYCLOPHOSPHAMIDE. [Suspect]
     Active Substance: CYCLOPHOSPHAMIDE
     Dosage: CYCLE 4 ON DAY 1,2 AND 3
     Route: 048
     Dates: start: 20140723, end: 20140725
  4. POLARAMINE [Concomitant]
     Active Substance: DEXCHLORPHENIRAMINE MALEATE
     Dosage: BEFORE EACH OBINUTUZUMAB ADMINISATRATION
     Route: 042
     Dates: start: 20140416, end: 20140416
  5. ZOLPIDEM [Concomitant]
     Active Substance: ZOLPIDEM\ZOLPIDEM TARTRATE
     Route: 048
     Dates: start: 20140825, end: 20140826
  6. ONDANSETRON [Concomitant]
     Active Substance: ONDANSETRON
     Route: 042
     Dates: start: 20140819, end: 20140819
  7. HIZENTRA [Concomitant]
     Active Substance: HUMAN IMMUNOGLOBULIN G
     Indication: INFECTION PROPHYLAXIS
     Route: 058
     Dates: start: 20160425
  8. OBINUTUZUMAB [Suspect]
     Active Substance: OBINUTUZUMAB
     Dosage: CYCLE 5 DAY 1
     Route: 042
     Dates: start: 20140819, end: 20140819
  9. FLUDARABINE [Suspect]
     Active Substance: FLUDARABINE PHOSPHATE
     Dosage: CYCLE 2 DAY 3
     Route: 048
     Dates: start: 20140516, end: 20140516
  10. FLUDARABINE [Suspect]
     Active Substance: FLUDARABINE PHOSPHATE
     Dosage: CYCLE 3 DAY 3
     Route: 048
     Dates: start: 20140620, end: 20140620
  11. FLUDARABINE [Suspect]
     Active Substance: FLUDARABINE PHOSPHATE
     Dosage: CYCLE 4,
     Route: 048
     Dates: start: 20140723, end: 20140725
  12. FLUDARABINE [Suspect]
     Active Substance: FLUDARABINE PHOSPHATE
     Dosage: CYCLE 5, ON DAY 1 AND 2
     Route: 048
     Dates: start: 20140820, end: 20140821
  13. CLARITYNE [Concomitant]
     Active Substance: LORATADINE
     Dosage: ONE TABLET
     Route: 048
     Dates: start: 20140917, end: 20140919
  14. FLUDARABINE [Suspect]
     Active Substance: FLUDARABINE PHOSPHATE
     Indication: CHRONIC LYMPHOCYTIC LEUKAEMIA
     Dosage: CYCLE 1 DAY 1?LAST DOSE PRIOR TO SAE ON 18/SEP/2014
     Route: 048
     Dates: start: 20140417, end: 20140417
  15. CYCLOPHOSPHAMIDE. [Suspect]
     Active Substance: CYCLOPHOSPHAMIDE
     Dosage: CYCLE 2 ON DAY 1,2 AND 3
     Route: 048
     Dates: start: 20140515, end: 20140518
  16. SOLU-MEDROL [Concomitant]
     Active Substance: METHYLPREDNISOLONE SODIUM SUCCINATE
     Route: 042
     Dates: start: 20140415, end: 20140415
  17. CIFLOX (FRANCE) [Concomitant]
     Active Substance: CIPROFLOXACIN
     Route: 048
     Dates: start: 20140715, end: 20140722
  18. OBINUTUZUMAB [Suspect]
     Active Substance: OBINUTUZUMAB
     Indication: CHRONIC LYMPHOCYTIC LEUKAEMIA
     Dosage: 25 MG, CYCLE 1 DAY 1, TEMPORARILY INTERRUPTED?1000 MG SPLIT DOSE ON CYCLE 1, DAY 1 AND DAY 2.
     Route: 042
     Dates: start: 20140415, end: 20140415
  19. FLUDARABINE [Suspect]
     Active Substance: FLUDARABINE PHOSPHATE
     Dosage: CYCLE 3 DAY 2
     Route: 048
     Dates: start: 20140619, end: 20140619
  20. LORATADINE. [Concomitant]
     Active Substance: LORATADINE
     Route: 048
     Dates: start: 20140916, end: 20140916
  21. FLUDARABINE [Suspect]
     Active Substance: FLUDARABINE PHOSPHATE
     Dosage: CYCLE 3 DAY 1
     Route: 048
     Dates: start: 20140618, end: 20140618
  22. FLUDARABINE [Suspect]
     Active Substance: FLUDARABINE PHOSPHATE
     Dosage: CYCLE 6, ON DAY 1,2 AND 3?MOST RECENT DOSE PRIOR TO SAE: 18/SEP/2014
     Route: 048
     Dates: start: 20140916
  23. CYCLOPHOSPHAMIDE. [Suspect]
     Active Substance: CYCLOPHOSPHAMIDE
     Dosage: CYCLE 5 ON DAY 1,2 AND 3
     Route: 048
     Dates: start: 20140820, end: 20140822
  24. POLARAMINE [Concomitant]
     Active Substance: DEXCHLORPHENIRAMINE MALEATE
     Dosage: BEFORE EACH OBINUTUZUMAB ADMINISATRATION
     Route: 042
     Dates: start: 20140415, end: 20140916
  25. PARACETAMOL [Concomitant]
     Active Substance: ACETAMINOPHEN
     Dosage: BEFORE EACH OBINUTUZUMAB ADMINISATRATION
     Route: 048
     Dates: start: 20140415, end: 20140416
  26. CALCIUM GLUCONATE. [Concomitant]
     Active Substance: CALCIUM GLUCONATE
     Route: 042
     Dates: start: 20140416, end: 20140416
  27. PRIMPERAN [Concomitant]
     Active Substance: METOCLOPRAMIDE HYDROCHLORIDE
     Route: 048
     Dates: start: 20140416, end: 20140423
  28. ZELITREX [Concomitant]
     Active Substance: VALACYCLOVIR HYDROCHLORIDE
     Route: 048
     Dates: start: 20140416
  29. OBINUTUZUMAB [Suspect]
     Active Substance: OBINUTUZUMAB
     Dosage: CYCLE 1 DAY 8
     Route: 042
     Dates: start: 20140423, end: 20140423
  30. FLUDARABINE [Suspect]
     Active Substance: FLUDARABINE PHOSPHATE
     Dosage: CYCLE 5, ON DAY 3
     Route: 048
     Dates: start: 20140822, end: 20140822
  31. CYCLOPHOSPHAMIDE. [Suspect]
     Active Substance: CYCLOPHOSPHAMIDE
     Dosage: CYCLE 6 ON DAY 1,2 AND 3.?MOST RECENT DOSE ON 18/SEP/2014
     Route: 048
     Dates: start: 20140916
  32. OBINUTUZUMAB [Suspect]
     Active Substance: OBINUTUZUMAB
     Dosage: CYCLE 1 DAY 2?1000 MG SPLIT DOSE ON CYCLE 1, DAY 1 AND DAY 2.
     Route: 042
     Dates: start: 20140416, end: 20140416
  33. OBINUTUZUMAB [Suspect]
     Active Substance: OBINUTUZUMAB
     Dosage: CYCLE 3 DAY 1
     Route: 042
     Dates: start: 20140617, end: 20140617
  34. OBINUTUZUMAB [Suspect]
     Active Substance: OBINUTUZUMAB
     Dosage: CYCLE 6 DAY 1?THIS WAS THE LAST DOSE PRIOR TO SAE 16/SEP/2014
     Route: 042
     Dates: start: 20140916
  35. FLUDARABINE [Suspect]
     Active Substance: FLUDARABINE PHOSPHATE
     Dosage: CYCLE 1 DAY 2
     Route: 048
     Dates: start: 20140418, end: 20140418
  36. CYCLOPHOSPHAMIDE. [Suspect]
     Active Substance: CYCLOPHOSPHAMIDE
     Dosage: CYCLE 3 ON DAY 1,2 AND 3
     Route: 048
     Dates: start: 20140618, end: 20140620
  37. METHYLPREDNISOLONE. [Concomitant]
     Active Substance: METHYLPREDNISOLONE
     Dosage: BEFORE EACH OBINUTUZUMAB ADMINISATRATION
     Route: 042
     Dates: start: 20140415, end: 20140916
  38. FASTURTEC [Concomitant]
     Active Substance: RASBURICASE
     Route: 042
     Dates: start: 20140415, end: 20140416
  39. AUGMENTIN [Concomitant]
     Active Substance: AMOXICILLIN\CLAVULANATE POTASSIUM
     Route: 048
     Dates: start: 20140715, end: 20140722
  40. ZYLORIC [Concomitant]
     Active Substance: ALLOPURINOL
     Route: 048
     Dates: start: 20140408, end: 20140414
  41. EMEND [Concomitant]
     Active Substance: APREPITANT
     Route: 048
     Dates: start: 20140819, end: 20140819
  42. OBINUTUZUMAB [Suspect]
     Active Substance: OBINUTUZUMAB
     Dosage: CYCLE 1 DAY 15
     Route: 042
     Dates: start: 20140430, end: 20140430
  43. OBINUTUZUMAB [Suspect]
     Active Substance: OBINUTUZUMAB
     Dosage: CYCLE 2 DAY 1
     Route: 042
     Dates: start: 20140514, end: 20140514
  44. OBINUTUZUMAB [Suspect]
     Active Substance: OBINUTUZUMAB
     Dosage: CYCLE 4 DAY 1
     Route: 042
     Dates: start: 20140722, end: 20140722
  45. CYCLOPHOSPHAMIDE. [Suspect]
     Active Substance: CYCLOPHOSPHAMIDE
     Indication: CHRONIC LYMPHOCYTIC LEUKAEMIA
     Dosage: LAST DOSE PRIOR TO SAE ON 18/SEP/2014?CYCLE 1 ON DAY 1,2 AND 3
     Route: 048
     Dates: start: 20140417, end: 20140419
  46. LEDERFOLINE [Concomitant]
     Active Substance: LEUCOVORIN CALCIUM
     Route: 048
     Dates: start: 20140416

REACTIONS (1)
  - Interstitial lung disease [Recovered/Resolved]

NARRATIVE: CASE EVENT DATE: 20160210
